FAERS Safety Report 7675059-9 (Version None)
Quarter: 2011Q3

REPORT INFORMATION
  Report Type: 
  Country: None (occurrence: None)
  Receive Date: 20110810
  Receipt Date: 20110803
  Transmission Date: 20111222
  Serious: Yes (Hospitalization)
  Sender: FDA-Public Use
  Company Number: JP-MERCK-1108USA00671

PATIENT
  Age: 85 Year
  Sex: Female

DRUGS (1)
  1. SINEMET [Suspect]
     Route: 048

REACTIONS (2)
  - BLOOD CATECHOLAMINES INCREASED [None]
  - BLOOD PRESSURE INCREASED [None]
